FAERS Safety Report 15615481 (Version 2)
Quarter: 2022Q1

REPORT INFORMATION
  Report Type: Spontaneous
  Country: CH (occurrence: CH)
  Receive Date: 20181114
  Receipt Date: 20220129
  Transmission Date: 20220423
  Serious: Yes (Hospitalization)
  Sender: FDA-Public Use
  Company Number: CH-SM-2018-13453

PATIENT
  Age: 58 Year
  Sex: Female
  Weight: 54.4 kg

DRUGS (7)
  1. GEMCITABINE\GEMCITABINE HYDROCHLORIDE [Suspect]
     Active Substance: GEMCITABINE\GEMCITABINE HYDROCHLORIDE
     Dosage: DOSAGE NOT KNOWN
     Route: 041
     Dates: start: 20180910, end: 20180925
  2. ABRAXANE [Suspect]
     Active Substance: PACLITAXEL
     Dosage: DOSAGE NOT KNOWN
     Route: 041
     Dates: start: 20180910, end: 20180925
  3. METAMIZOLE [Concomitant]
     Active Substance: METAMIZOLE
     Dosage: 1500 MILLIGRAM DAILY;
     Route: 048
  4. MYCOSTATIN [Concomitant]
     Active Substance: NYSTATIN
     Dosage: 3 DOSAGE FORMS DAILY;
     Route: 048
  5. ATORVASTATIN [Concomitant]
     Active Substance: ATORVASTATIN
     Dosage: 20 MILLIGRAM DAILY;
     Route: 048
  6. LANTUS [Concomitant]
     Active Substance: INSULIN GLARGINE
     Dosage: 10 IU (INTERNATIONAL UNIT) DAILY;
     Route: 058
  7. KYTRIL [Concomitant]
     Active Substance: GRANISETRON HYDROCHLORIDE
     Dosage: AS NECESSARY
     Route: 048

REACTIONS (1)
  - Colitis [Recovered/Resolved]

NARRATIVE: CASE EVENT DATE: 20180901
